FAERS Safety Report 25108597 (Version 1)
Quarter: 2025Q1

REPORT INFORMATION
  Report Type: Spontaneous
  Country: IN (occurrence: IN)
  Receive Date: 20250322
  Receipt Date: 20250322
  Transmission Date: 20250408
  Serious: Yes (Other)
  Sender: ZYDUS PHARM
  Company Number: IN-CADILA HEALTHCARE LIMITED-IN-ZYDUS-121060

PATIENT

DRUGS (20)
  1. METHOTREXATE [Suspect]
     Active Substance: METHOTREXATE
     Indication: B-cell lymphoma
     Route: 037
  2. METHOTREXATE [Suspect]
     Active Substance: METHOTREXATE
     Route: 042
  3. METHOTREXATE [Suspect]
     Active Substance: METHOTREXATE
     Route: 042
  4. CYCLOPHOSPHAMIDE [Suspect]
     Active Substance: CYCLOPHOSPHAMIDE
     Indication: B-cell lymphoma
     Route: 042
  5. CYCLOPHOSPHAMIDE [Suspect]
     Active Substance: CYCLOPHOSPHAMIDE
     Route: 042
  6. CYCLOPHOSPHAMIDE [Suspect]
     Active Substance: CYCLOPHOSPHAMIDE
     Route: 042
  7. CYCLOPHOSPHAMIDE [Suspect]
     Active Substance: CYCLOPHOSPHAMIDE
     Route: 042
  8. CYCLOPHOSPHAMIDE [Suspect]
     Active Substance: CYCLOPHOSPHAMIDE
     Route: 042
  9. CYCLOPHOSPHAMIDE [Suspect]
     Active Substance: CYCLOPHOSPHAMIDE
     Route: 042
  10. HYDROCORTISONE [Suspect]
     Active Substance: HYDROCORTISONE
     Indication: B-cell lymphoma
     Route: 037
  11. PREDNISOLONE [Suspect]
     Active Substance: PREDNISOLONE
     Indication: B-cell lymphoma
     Route: 048
  12. ADRIAMYCIN [Suspect]
     Active Substance: DOXORUBICIN HYDROCHLORIDE
     Indication: B-cell lymphoma
     Route: 042
  13. CYTARABINE [Suspect]
     Active Substance: CYTARABINE
     Indication: B-cell lymphoma
     Route: 037
  14. LEUCOVORIN [Suspect]
     Active Substance: LEUCOVORIN\LEUCOVORIN CALCIUM
     Indication: B-cell lymphoma
     Route: 048
  15. LEUCOVORIN [Suspect]
     Active Substance: LEUCOVORIN\LEUCOVORIN CALCIUM
     Route: 048
  16. RITUXIMAB [Suspect]
     Active Substance: RITUXIMAB
     Indication: B-cell lymphoma
     Route: 042
  17. ONCOVIN [Suspect]
     Active Substance: VINCRISTINE SULFATE
     Indication: B-cell lymphoma
     Route: 042
  18. ONCOVIN [Suspect]
     Active Substance: VINCRISTINE SULFATE
     Route: 042
  19. ONCOVIN [Suspect]
     Active Substance: VINCRISTINE SULFATE
     Route: 042
  20. ONCOVIN [Suspect]
     Active Substance: VINCRISTINE SULFATE
     Route: 042

REACTIONS (2)
  - Febrile neutropenia [Unknown]
  - Posterior reversible encephalopathy syndrome [Unknown]
